FAERS Safety Report 6150598-0 (Version None)
Quarter: 2009Q2

REPORT INFORMATION
  Report Type: 
  Country: None (occurrence: None)
  Receive Date: 20090408
  Receipt Date: 20090408
  Transmission Date: 20091009
  Serious: No
  Sender: FDA-Public Use
  Company Number: None

PATIENT
  Sex: Female
  Weight: 63.5036 kg

DRUGS (1)
  1. IMITREX [Suspect]
     Indication: MIGRAINE
     Dosage: 1 TABLET PRN PO
     Route: 048
     Dates: start: 20070303, end: 20080528

REACTIONS (4)
  - ABDOMINAL PAIN [None]
  - PAIN IN EXTREMITY [None]
  - SEDATION [None]
  - SOMNOLENCE [None]
